FAERS Safety Report 16789660 (Version 1)
Quarter: 2019Q3

REPORT INFORMATION
  Report Type: Spontaneous
  Country: SE (occurrence: SE)
  Receive Date: 20190910
  Receipt Date: 20190910
  Transmission Date: 20191005
  Serious: Yes (Hospitalization)
  Sender: FDA-Public Use
  Company Number: SE-TEVA-2019-SE-1103789

PATIENT
  Age: 79 Year
  Sex: Male

DRUGS (10)
  1. T METFORMIN [Concomitant]
  2. INJ EPIPEN [Concomitant]
  3. T SIMVASTATIN [Concomitant]
  4. MEMANTINE RATIOPHARM [Suspect]
     Active Substance: MEMANTINE
     Indication: DEMENTIA ALZHEIMER^S TYPE
     Route: 048
     Dates: start: 20190817
  5. TAFLOTAN OG.DR [Concomitant]
  6. WARAN [Concomitant]
     Active Substance: WARFARIN SODIUM
  7. DT METOPROLOL [Concomitant]
  8. T TROMBYL [Concomitant]
  9. OMEPRAZOL [Concomitant]
     Active Substance: OMEPRAZOLE
  10. T AMLODIPIN [Concomitant]

REACTIONS (1)
  - Urticaria [Not Recovered/Not Resolved]

NARRATIVE: CASE EVENT DATE: 20190818
